FAERS Safety Report 19225906 (Version 1)
Quarter: 2021Q2

REPORT INFORMATION
  Report Type: Other
  Country: US (occurrence: US)
  Receive Date: 20210505
  Receipt Date: 20210505
  Transmission Date: 20210717
  Serious: No
  Sender: FDA-Public Use
  Company Number: US-ROCHE-2681030

PATIENT
  Age: 8 Year
  Sex: Female

DRUGS (2)
  1. BEVACIZUMAB. [Suspect]
     Active Substance: BEVACIZUMAB
     Indication: RESPIRATORY PAPILLOMA
     Route: 026
  2. BEVACIZUMAB. [Suspect]
     Active Substance: BEVACIZUMAB
     Dosage: 1?4 CYCLES AND GRADUALLY INCREASED TO EVERY 8 WEEKS BY CYCLE 10.
     Route: 042
     Dates: start: 201810

REACTIONS (1)
  - Epistaxis [Unknown]
